FAERS Safety Report 24614008 (Version 2)
Quarter: 2024Q4

REPORT INFORMATION
  Report Type: Spontaneous
  Country: GB (occurrence: GB)
  Receive Date: 20241113
  Receipt Date: 20241121
  Transmission Date: 20250115
  Serious: Yes (Other)
  Sender: TEVA
  Company Number: GB-MHRA-EMIS-2338-3d022a48-d57f-4cf1-8225-ec5c42adbb33

PATIENT
  Age: 52 Year
  Sex: Female
  Weight: 57 kg

DRUGS (4)
  1. CLARITHROMYCIN [Suspect]
     Active Substance: CLARITHROMYCIN
     Indication: Product used for unknown indication
     Dosage: ONE TO BE TAKEN TWICE A DAY
     Route: 065
     Dates: start: 20241021, end: 20241024
  2. MOMETASONE [Concomitant]
     Active Substance: MOMETASONE
     Indication: Acute sinusitis
     Dosage: THEN REDUCE WHEN SYMPTOMS UNDER CONTROL
     Route: 045
     Dates: start: 20241015
  3. AMOXICILLIN [Concomitant]
     Active Substance: AMOXICILLIN
     Dosage: FOR FIVE DAYS
     Route: 065
     Dates: start: 20241015
  4. Ciprofloxacin 0.3% / Dexamethasone 0.1% ear drops [Concomitant]
     Dosage: APPLY 4 DROPS TWICE DAILY TO THE EFFECTED EAR FOR 7 DAY?5ML
     Route: 065
     Dates: start: 20241007

REACTIONS (1)
  - Suicidal ideation [Recovered/Resolved]

NARRATIVE: CASE EVENT DATE: 20241021
